FAERS Safety Report 19652062 (Version 3)
Quarter: 2021Q3

REPORT INFORMATION
  Report Type: Spontaneous
  Country: US (occurrence: US)
  Receive Date: 20210803
  Receipt Date: 20210830
  Transmission Date: 20211014
  Serious: Yes (Life-Threatening, Hospitalization, Other)
  Sender: FDA-Public Use
  Company Number: NVSC2021US171853

PATIENT
  Age: 51 Year
  Sex: Female
  Weight: 50.3 kg

DRUGS (1)
  1. KYMRIAH [Suspect]
     Active Substance: TISAGENLECLEUCEL
     Indication: DIFFUSE LARGE B-CELL LYMPHOMA
     Dosage: .7X10^8 CAR+ VIABLE T?CELLS (42 ML INFUSED IV)
     Route: 042
     Dates: start: 20210719, end: 20210719

REACTIONS (10)
  - Immune effector cell-associated neurotoxicity syndrome [Recovered/Resolved]
  - Pyrexia [Unknown]
  - Cytokine release syndrome [Recovered/Resolved]
  - Oxygen saturation [Unknown]
  - Fatigue [Unknown]
  - Hypertension [Unknown]
  - Immune effector cell-associated neurotoxicity syndrome [Recovered/Resolved]
  - Heart rate abnormal [Unknown]
  - Hypotension [Unknown]
  - Blood pressure abnormal [Unknown]

NARRATIVE: CASE EVENT DATE: 20210720
